FAERS Safety Report 9544225 (Version 1)
Quarter: 2013Q3

REPORT INFORMATION
  Report Type: Spontaneous
  Country: US (occurrence: US)
  Receive Date: 20130923
  Receipt Date: 20130923
  Transmission Date: 20140515
  Serious: No
  Sender: FDA-Public Use
  Company Number: US-ASTRAZENECA-2013SE62954

PATIENT
  Age: 82 Year
  Sex: Female

DRUGS (12)
  1. ATENOLOL [Suspect]
     Route: 065
  2. LISINOPRIL [Suspect]
     Route: 048
  3. SEROQUEL [Suspect]
     Dosage: GENERIC
     Route: 048
  4. SEROQUEL [Suspect]
     Route: 048
  5. SERTRALINE [Concomitant]
     Route: 048
  6. BUSPIRONE [Concomitant]
     Route: 048
  7. VITAMIN B COMPLEX [Concomitant]
  8. COQ10 [Concomitant]
  9. LYSINE [Concomitant]
  10. LUTEIN 20 [Concomitant]
  11. VENTOLIN INHALER [Concomitant]
     Dosage: Q4-6H
     Route: 055
  12. VENTOLIN INHALER [Concomitant]
     Dosage: 1-2 PUFFS PRN
     Route: 055

REACTIONS (3)
  - Mobility decreased [Unknown]
  - Activities of daily living impaired [Unknown]
  - Drug ineffective [Unknown]
